FAERS Safety Report 5894066-X (Version None)
Quarter: 2008Q3

REPORT INFORMATION
  Report Type: 
  Country: None (occurrence: None)
  Receive Date: 20080922
  Receipt Date: 20080910
  Transmission Date: 20090109
  Serious: Yes (Other)
  Sender: FDA-Public Use
  Company Number: 2004079272

PATIENT
  Sex: Female
  Weight: 77.6 kg

DRUGS (15)
  1. ZYRTEC [Suspect]
     Indication: HYPERSENSITIVITY
     Dosage: 10 MG (10 MG, 1 IN 1 D), ORAL
     Route: 048
  2. CELEBREX [Suspect]
     Indication: ARTHRITIS
     Dosage: 200 MG DAILY
     Dates: start: 20080101, end: 20080801
  3. DETROL LA [Suspect]
     Indication: URINARY INCONTINENCE
  4. XALATAN [Suspect]
     Indication: GLAUCOMA
     Dosage: 1 DROP IN EACH EYE ONCE DAILY, OPTHALMIC
     Route: 047
  5. VESICARE [Suspect]
     Indication: DRUG USE FOR UNKNOWN INDICATION
  6. ALL OTHER THERAPEUTIC PRODUCTS (ALL OTHER THERAPEUTIC PRODUCTS) [Suspect]
     Indication: DRUG USE FOR UNKNOWN INDICATION
  7. BEXTRA [Concomitant]
  8. VIOXX [Concomitant]
  9. LISINOPRIL AND HYDROCHLOROTHIAZIDE [Concomitant]
  10. THYROID TAB [Concomitant]
  11. TRAMADOL HCL [Concomitant]
  12. MELOXICAM [Concomitant]
  13. PHILLIPS LAXCAPS (DOCUSATE SODIUM, PHENOLPHTHALEIN) [Concomitant]
  14. SENOKOT [Concomitant]
  15. TROSPIUM (TROSPIUM) [Concomitant]

REACTIONS (14)
  - BLADDER DISORDER [None]
  - CONSTIPATION [None]
  - CYSTITIS [None]
  - DIZZINESS [None]
  - DRY MOUTH [None]
  - EYE DISORDER [None]
  - EYE IRRITATION [None]
  - GLAUCOMA [None]
  - LIP DRY [None]
  - OPTIC NERVE INJURY [None]
  - PAIN IN EXTREMITY [None]
  - POLLAKIURIA [None]
  - RASH [None]
  - URINARY INCONTINENCE [None]
